FAERS Safety Report 5799947-3 (Version None)
Quarter: 2008Q2

REPORT INFORMATION
  Report Type: 
  Country: None (occurrence: None)
  Receive Date: 20080626
  Receipt Date: 20070604
  Transmission Date: 20081010
  Serious: Yes (Death)
  Sender: FDA-Public Use
  Company Number: 500440

PATIENT
  Age: 59 Year
  Sex: Male

DRUGS (2)
  1. XELODA [Suspect]
     Indication: LARYNGEAL CANCER RECURRENT
     Dates: start: 20070117
  2. XELODA [Suspect]
     Indication: METASTASIS
     Dates: start: 20070117

REACTIONS (2)
  - LARYNGEAL CANCER RECURRENT [None]
  - METASTASIS [None]
